FAERS Safety Report 11003670 (Version 4)
Quarter: 2015Q3

REPORT INFORMATION
  Report Type: Report from Study
  Country: US (occurrence: US)
  Receive Date: 20150409
  Receipt Date: 20150723
  Transmission Date: 20151125
  Serious: Yes (Hospitalization, Other)
  Sender: FDA-Public Use
  Company Number: US-BIOGENIDEC-2015BI042578

PATIENT
  Age: 58 Year
  Sex: Female

DRUGS (3)
  1. DIAZEPAM. [Concomitant]
     Active Substance: DIAZEPAM
  2. TECFIDERA [Suspect]
     Active Substance: DIMETHYL FUMARATE
     Indication: MULTIPLE SCLEROSIS
     Route: 048
  3. METHADONE [Concomitant]
     Active Substance: METHADONE HYDROCHLORIDE

REACTIONS (12)
  - Acute kidney injury [Recovered/Resolved]
  - Cognitive disorder [Unknown]
  - Headache [Recovered/Resolved]
  - Renal pain [Recovered/Resolved]
  - Unresponsive to stimuli [Unknown]
  - Sedation [Recovered/Resolved]
  - Weight decreased [Unknown]
  - Bladder disorder [Recovered/Resolved]
  - Hypoglycaemia [Recovered/Resolved]
  - Overdose [Unknown]
  - Transaminases increased [Recovered/Resolved]
  - Vomiting [Recovered/Resolved]

NARRATIVE: CASE EVENT DATE: 2015
